FAERS Safety Report 12624390 (Version 1)
Quarter: 2016Q3

REPORT INFORMATION
  Report Type: Spontaneous
  Country: US (occurrence: US)
  Receive Date: 20160805
  Receipt Date: 20160805
  Transmission Date: 20161109
  Serious: No
  Sender: FDA-Public Use
  Company Number: US-BIOGEN-2016BI00273148

PATIENT
  Sex: Male

DRUGS (1)
  1. TECFIDERA [Suspect]
     Active Substance: DIMETHYL FUMARATE
     Indication: MULTIPLE SCLEROSIS
     Dosage: MAINTENANCE DOSE
     Route: 048
     Dates: start: 20140129

REACTIONS (5)
  - Hypoaesthesia [Not Recovered/Not Resolved]
  - Peroneal nerve palsy [Not Recovered/Not Resolved]
  - Pain in extremity [Not Recovered/Not Resolved]
  - Muscular weakness [Not Recovered/Not Resolved]
  - Gait disturbance [Not Recovered/Not Resolved]
